FAERS Safety Report 5030665-5 (Version None)
Quarter: 2006Q2

REPORT INFORMATION
  Report Type: 
  Country: None (occurrence: None)
  Receive Date: 20060615
  Receipt Date: 20060602
  Transmission Date: 20061013
  Serious: Yes (Hospitalization)
  Sender: FDA-Public Use
  Company Number: 2006071375

PATIENT
  Age: 53 Year
  Sex: Male

DRUGS (5)
  1. DILANTIN [Suspect]
     Indication: ILL-DEFINED DISORDER
     Dates: start: 20060421, end: 20060507
  2. GARDENAL ^AVENTIS^ (PHENOBARBITAL) [Suspect]
     Indication: ILL-DEFINED DISORDER
     Dates: start: 20060420, end: 20060508
  3. PAROXETINE HYDROCHLORIDE [Concomitant]
  4. FOZIRETIC (FOSINOPRIL SODIUM, HYDROCHLOROTHIAZIDE) [Concomitant]
  5. VITAMIN B1 AND B6 (PYRIDOXINE, THIAMINE) [Concomitant]

REACTIONS (8)
  - BLEPHAROSPASM [None]
  - COMA [None]
  - EYE MOVEMENT DISORDER [None]
  - NEUTROPENIA [None]
  - NYSTAGMUS [None]
  - PYREXIA [None]
  - WHITE BLOOD CELL COUNT DECREASED [None]
  - WHITE BLOOD CELL COUNT INCREASED [None]
